FAERS Safety Report 7524893-4 (Version None)
Quarter: 2011Q2

REPORT INFORMATION
  Report Type: 
  Country: None (occurrence: None)
  Receive Date: 20110602
  Receipt Date: 20110602
  Transmission Date: 20111010
  Serious: Yes (Other)
  Sender: FDA-Public Use
  Company Number: None

PATIENT
  Age: 50 Year
  Sex: Female
  Weight: 58.514 kg

DRUGS (1)
  1. PROPOFOL [Suspect]
     Indication: ANAESTHESIA
     Dosage: NA ONCE IV
     Route: 042
     Dates: start: 20110429, end: 20110429

REACTIONS (2)
  - UNEVALUABLE EVENT [None]
  - INSOMNIA [None]
